FAERS Safety Report 13868921 (Version 3)
Quarter: 2018Q3

REPORT INFORMATION
  Report Type: Report from Study
  Country: DE (occurrence: DE)
  Receive Date: 20170815
  Receipt Date: 20180803
  Transmission Date: 20181010
  Serious: Yes (Other)
  Sender: FDA-Public Use
  Company Number: DE-ROCHE-1851702

PATIENT
  Age: 86 Year
  Sex: Female
  Weight: 53 kg

DRUGS (28)
  1. RANIBIZUMAB. [Suspect]
     Active Substance: RANIBIZUMAB
     Dosage: 0.5 MG, 1X (VIAL,RIGHT EYE)
     Route: 031
     Dates: start: 20151102
  2. RANIBIZUMAB. [Suspect]
     Active Substance: RANIBIZUMAB
     Dosage: 0.5 MG, 1X (VIAL,RIGHT EYE)
     Route: 031
     Dates: start: 20160111
  3. RANIBIZUMAB. [Suspect]
     Active Substance: RANIBIZUMAB
     Dosage: 0.5 MG, 1X (VIAL,RIGHT EYE)
     Route: 031
     Dates: start: 20160523, end: 20160523
  4. RANIBIZUMAB. [Suspect]
     Active Substance: RANIBIZUMAB
     Dosage: 0.5 MG, 1X (RIGHT EYE)
     Route: 031
     Dates: start: 20160718
  5. RANIBIZUMAB. [Suspect]
     Active Substance: RANIBIZUMAB
     Dosage: 0.5 MG, 1X (LEFT EYE)
     Route: 031
     Dates: start: 20170213
  6. RANIBIZUMAB. [Suspect]
     Active Substance: RANIBIZUMAB
     Dosage: 0.5 MG, 1X (RIGHT EYE)
     Route: 031
     Dates: start: 20170424
  7. RANIBIZUMAB. [Suspect]
     Active Substance: RANIBIZUMAB
     Dosage: 0.5 MG, 1X (VIAL,RIGHT EYE)
     Route: 031
     Dates: start: 20160321, end: 20160321
  8. RANIBIZUMAB. [Suspect]
     Active Substance: RANIBIZUMAB
     Dosage: 0.5 MG, 1X (VIAL,LEFT EYE)
     Route: 031
     Dates: start: 20151026
  9. RANIBIZUMAB. [Suspect]
     Active Substance: RANIBIZUMAB
     Dosage: 0.5 MG, 1X (VIAL,LEFT EYE)
     Route: 031
     Dates: start: 20160208
  10. RANIBIZUMAB. [Suspect]
     Active Substance: RANIBIZUMAB
     Dosage: 0.5 MG, 1X (RIGHT EYE)
     Route: 031
     Dates: start: 20161205
  11. RANIBIZUMAB. [Suspect]
     Active Substance: RANIBIZUMAB
     Dosage: 0.5 MG, 1X (LEFT EYE)
     Route: 031
     Dates: start: 20170410
  12. RANIBIZUMAB. [Suspect]
     Active Substance: RANIBIZUMAB
     Dosage: 0.5 MG, 1X (VIAL,LEFT EYE)
     Route: 031
     Dates: start: 20150928
  13. RANIBIZUMAB. [Suspect]
     Active Substance: RANIBIZUMAB
     Dosage: 0.5 MG, 1X (LEFT EYE)
     Route: 031
     Dates: start: 20160811
  14. RANIBIZUMAB. [Suspect]
     Active Substance: RANIBIZUMAB
     Dosage: 0.5 MG, 1X (LEFT EYE)
     Route: 031
     Dates: start: 20160926
  15. RANIBIZUMAB. [Suspect]
     Active Substance: RANIBIZUMAB
     Dosage: 0.5 MG, 1X (LEFT EYE)
     Route: 031
     Dates: start: 20170102
  16. RANIBIZUMAB. [Suspect]
     Active Substance: RANIBIZUMAB
     Indication: NEOVASCULAR AGE-RELATED MACULAR DEGENERATION
     Dosage: 0.5 MG, 1X (PRE?FILLED SYRINGE,LEFT EYE)
     Route: 031
     Dates: start: 20150831
  17. RANIBIZUMAB. [Suspect]
     Active Substance: RANIBIZUMAB
     Dosage: 0.5 MG, 1X (VIAL,RIGHT EYE)
     Route: 031
     Dates: start: 20151130
  18. RANIBIZUMAB. [Suspect]
     Active Substance: RANIBIZUMAB
     Dosage: 0.5 MG, 1X (LEFT EYE)
     Route: 031
     Dates: start: 20160613
  19. RANIBIZUMAB. [Suspect]
     Active Substance: RANIBIZUMAB
     Dosage: 0.5 MG, 1X (PRE?FILLED SYRINGE,RIGHT EYE)
     Route: 031
     Dates: start: 20150907
  20. RANIBIZUMAB. [Suspect]
     Active Substance: RANIBIZUMAB
     Dosage: 0.5 MG, 1X (VIAL,RIGHT EYE)
     Route: 031
     Dates: start: 20151005
  21. RANIBIZUMAB. [Suspect]
     Active Substance: RANIBIZUMAB
     Dosage: 0.5 MG, 1X (VIAL,LEFT EYE)
     Route: 031
     Dates: start: 20151123
  22. RANIBIZUMAB. [Suspect]
     Active Substance: RANIBIZUMAB
     Dosage: 0.5 MG, 1X (VIAL,LEFT EYE)
     Route: 031
     Dates: start: 20151228
  23. RANIBIZUMAB. [Suspect]
     Active Substance: RANIBIZUMAB
     Dosage: 0.5 MG, 1X (RIGHT EYE)
     Route: 031
     Dates: start: 20170130
  24. RANIBIZUMAB. [Suspect]
     Active Substance: RANIBIZUMAB
     Dosage: 0.5 MG, 1X (RIGHT EYE)
     Route: 031
     Dates: start: 20170227
  25. RANIBIZUMAB. [Suspect]
     Active Substance: RANIBIZUMAB
     Dosage: 0.5 MG, 1X (VIAL,LEFT EYE)
     Route: 031
     Dates: start: 20160404
  26. RANIBIZUMAB. [Suspect]
     Active Substance: RANIBIZUMAB
     Dosage: 0.5 MG, 1X (RIGHT EYE)
     Route: 031
     Dates: start: 20161031
  27. RANIBIZUMAB. [Suspect]
     Active Substance: RANIBIZUMAB
     Dosage: 0.5 MG, 1X (RIGHT EYE)
     Route: 031
     Dates: start: 20160905
  28. RANIBIZUMAB. [Suspect]
     Active Substance: RANIBIZUMAB
     Dosage: 0.5 MG, 1X (LEFT EYE)
     Route: 031
     Dates: start: 20161128

REACTIONS (4)
  - Normal tension glaucoma [Not Recovered/Not Resolved]
  - Vitreous detachment [Unknown]
  - Retinal detachment [Recovering/Resolving]
  - Inappropriate schedule of drug administration [Unknown]

NARRATIVE: CASE EVENT DATE: 20160523
